FAERS Safety Report 9146729 (Version 1)
Quarter: 2013Q1

REPORT INFORMATION
  Report Type: Spontaneous
  Country: US (occurrence: None)
  Receive Date: 20130228
  Receipt Date: 20130228
  Transmission Date: 20140127
  Serious: Yes (Other)
  Sender: FDA-Public Use
  Company Number: None

PATIENT
  Age: 72 Year
  Sex: Female
  Weight: 56.7 kg

DRUGS (1)
  1. CHLOR-TRIMETON [Suspect]
     Indication: COUGH

REACTIONS (4)
  - Visual impairment [None]
  - Eye infection [None]
  - Corneal disorder [None]
  - Product packaging issue [None]
